FAERS Safety Report 8546071-2 (Version None)
Quarter: 2012Q3

REPORT INFORMATION
  Report Type: 
  Country: None (occurrence: None)
  Receive Date: 20120727
  Receipt Date: 20111207
  Transmission Date: 20120928
  Serious: No
  Sender: FDA-Public Use
  Company Number: US-ASTRAZENECA-2011SE74103

PATIENT
  Age: 25 Year
  Sex: Female
  Weight: 53.5 kg

DRUGS (6)
  1. SEROQUEL [Suspect]
     Indication: BIPOLAR DISORDER
     Route: 048
     Dates: start: 20090101
  2. CECLORE [Concomitant]
  3. SEROQUEL [Suspect]
     Indication: ANXIETY
     Route: 048
     Dates: start: 20090101
  4. TRI-SPRINTEC [Concomitant]
     Indication: CONTRACEPTION
  5. PRISTIQ [Concomitant]
     Indication: CONTRACEPTION
  6. SATRA [Concomitant]

REACTIONS (6)
  - SOMNOLENCE [None]
  - DRUG DOSE OMISSION [None]
  - HEADACHE [None]
  - MALAISE [None]
  - DIZZINESS [None]
  - NAUSEA [None]
